FAERS Safety Report 23131468 (Version 1)
Quarter: 2023Q4

REPORT INFORMATION
  Report Type: Spontaneous
  Country: HR (occurrence: HR)
  Receive Date: 20231031
  Receipt Date: 20231031
  Transmission Date: 20240109
  Serious: Yes (Life-Threatening, Hospitalization)
  Sender: FDA-Public Use
  Company Number: None

PATIENT
  Age: 71 Year
  Sex: Female
  Weight: 52 kg

DRUGS (1)
  1. TOCILIZUMAB [Suspect]
     Active Substance: TOCILIZUMAB
     Indication: Giant cell arteritis
     Route: 058
     Dates: start: 20191118, end: 20230801

REACTIONS (5)
  - Prothrombin time prolonged [Recovering/Resolving]
  - Coagulation factor XIII level decreased [Recovering/Resolving]
  - Extravasation blood [Recovering/Resolving]
  - Thrombocytopenia [Recovering/Resolving]
  - Hypofibrinogenaemia [Recovering/Resolving]

NARRATIVE: CASE EVENT DATE: 20230808
